FAERS Safety Report 8351504 (Version 3)
Quarter: 2013Q1

REPORT INFORMATION
  Report Type: Report from Study
  Country: UA (occurrence: UA)
  Receive Date: 20120124
  Receipt Date: 20130306
  Transmission Date: 20140127
  Serious: Yes (Hospitalization)
  Sender: FDA-Public Use
  Company Number: UA-GLAXOSMITHKLINE-Z0013400B

PATIENT
  Age: 61 Year
  Sex: Female
  Weight: 59 kg

DRUGS (4)
  1. OFATUMUMAB [Suspect]
     Indication: CHRONIC LYMPHOCYTIC LEUKAEMIA
     Route: 042
     Dates: start: 20110920
  2. FLUDARABINE [Suspect]
     Indication: CHRONIC LYMPHOCYTIC LEUKAEMIA
     Route: 042
     Dates: start: 20110920
  3. CYCLOPHOSPHAMIDE [Suspect]
     Indication: CHRONIC LYMPHOCYTIC LEUKAEMIA
     Route: 042
     Dates: start: 20110920
  4. OMEPRAZOLE [Concomitant]
     Dosage: 40MG PER DAY
     Route: 048
     Dates: start: 20111221, end: 20120113

REACTIONS (1)
  - Autoimmune haemolytic anaemia [Recovered/Resolved]
